FAERS Safety Report 8369778-9 (Version None)
Quarter: 2012Q2

REPORT INFORMATION
  Report Type: 
  Country: None (occurrence: None)
  Receive Date: 20120518
  Receipt Date: 20120513
  Transmission Date: 20120825
  Serious: Yes (Other)
  Sender: FDA-Public Use
  Company Number: GB-UCBSA-057380

PATIENT

DRUGS (1)
  1. CIMZIA [Suspect]

REACTIONS (1)
  - TUBERCULOSIS [None]
